FAERS Safety Report 8557717-7 (Version None)
Quarter: 2012Q3

REPORT INFORMATION
  Report Type: 
  Country: None (occurrence: None)
  Receive Date: 20120801
  Receipt Date: 20100817
  Transmission Date: 20120928
  Serious: Yes (Death, Other)
  Sender: FDA-Public Use
  Company Number: CO-PFIZER INC-2012185196

PATIENT
  Age: 76 Year
  Sex: Female

DRUGS (3)
  1. LOSARTAN [Concomitant]
     Dosage: 100 MG, 2X/DAY
  2. ACETYLSALICYLIC ACID [Concomitant]
     Dosage: 100 MG, 1X/DAY
  3. LIPITOR [Suspect]
     Indication: DYSLIPIDAEMIA
     Dosage: 10 MG, 1X/DAY

REACTIONS (2)
  - SUDDEN CARDIAC DEATH [None]
  - HYPERTENSIVE EMERGENCY [None]
